FAERS Safety Report 5846190-5 (Version None)
Quarter: 2008Q3

REPORT INFORMATION
  Report Type: 
  Country: None (occurrence: None)
  Receive Date: 20080813
  Receipt Date: 20080808
  Transmission Date: 20090109
  Serious: Yes (Hospitalization, Other)
  Sender: FDA-Public Use
  Company Number: 2008SP007436

PATIENT
  Age: 39 Year
  Sex: Female

DRUGS (5)
  1. PEG-INTRON [Suspect]
     Indication: HEPATITIS C
     Dosage: ;SC
     Route: 058
     Dates: start: 20080103, end: 20080321
  2. PEG-INTRON [Suspect]
     Indication: HEPATITIS C
     Dosage: ;SC
     Route: 058
     Dates: start: 20080623, end: 20080707
  3. RIBAVIRIN [Suspect]
     Dosage: ;PO
     Route: 048
     Dates: start: 20080103, end: 20080321
  4. RIBAVIRIN [Suspect]
     Dosage: ;PO
     Route: 048
     Dates: start: 20080623, end: 20080707
  5. ABILIFY [Suspect]
     Indication: DRUG USE FOR UNKNOWN INDICATION

REACTIONS (46)
  - ABDOMINAL DISTENSION [None]
  - ABDOMINAL PAIN [None]
  - ANAEMIA [None]
  - ANGER [None]
  - ANXIETY [None]
  - ARTHRITIS [None]
  - CONSTIPATION [None]
  - CONTUSION [None]
  - DEPRESSION [None]
  - DIARRHOEA [None]
  - DRUG ABUSE [None]
  - DYSPNOEA [None]
  - FAECES DISCOLOURED [None]
  - FATIGUE [None]
  - FURUNCLE [None]
  - GASTRITIS [None]
  - HAEMATOCHEZIA [None]
  - HAEMORRHOIDS [None]
  - HALLUCINATION, VISUAL [None]
  - HEADACHE [None]
  - HEPATIC ENZYME INCREASED [None]
  - HEPATIC PAIN [None]
  - HEPATOMEGALY [None]
  - INJECTION SITE INFECTION [None]
  - INSOMNIA [None]
  - INTENTIONAL SELF-INJURY [None]
  - JAUNDICE [None]
  - JOINT SWELLING [None]
  - MENTAL DISORDER [None]
  - NIGHT SWEATS [None]
  - PAIN [None]
  - PALMAR ERYTHEMA [None]
  - PHARYNGEAL OEDEMA [None]
  - PRURITUS [None]
  - RASH ERYTHEMATOUS [None]
  - SKIN LESION [None]
  - SLEEP DISORDER [None]
  - STAPHYLOCOCCAL INFECTION [None]
  - SUICIDAL BEHAVIOUR [None]
  - SUICIDE ATTEMPT [None]
  - SWELLING FACE [None]
  - VESSEL PUNCTURE SITE HAEMATOMA [None]
  - VIRAL LOAD INCREASED [None]
  - VOMITING [None]
  - WEIGHT INCREASED [None]
  - WHITE BLOOD CELL COUNT DECREASED [None]
